FAERS Safety Report 7563500-1 (Version None)
Quarter: 2011Q2

REPORT INFORMATION
  Report Type: 
  Country: None (occurrence: None)
  Receive Date: 20110615
  Receipt Date: 20110605
  Transmission Date: 20111010
  Serious: Yes (Other)
  Sender: FDA-Public Use
  Company Number: GER/GER/11/0018618

PATIENT
  Age: 28 Year
  Sex: Female
  Weight: 65 kg

DRUGS (11)
  1. TOPIRAMATE [Suspect]
     Indication: PRODUCT USED FOR UNKNOWN INDICATION
     Dosage: 45 DOSAGE FORMS, 1 IN 1 TOTAL, ORAL
     Route: 048
  2. NO SPA 40 (DROTAVERINE HYDROCHLORIDE) [Suspect]
     Indication: PRODUCT USED FOR UNKNOWN INDICATION
     Dosage: 10 DOSAGE FORMS, 1 IN 1 TOTAL, ORAL
     Route: 048
  3. LAMOTRIGINE [Suspect]
     Indication: PRODUCT USED FOR UNKNOWN INDICATION
     Dosage: 35 DOSAGE FORMS, 1 IN 1 TOTAL, ORAL
     Route: 048
  4. AMLODIPINE BESYLATE [Suspect]
     Indication: PRODUCT USED FOR UNKNOWN INDICATION
     Dosage: 10 DOSAGE FORMS, 1 IN 1 TOTAL, ORAL
     Route: 048
  5. ACETAMINOPHEN [Suspect]
     Indication: PRODUCT USED FOR UNKNOWN INDICATION
     Dosage: 10 DOSAGE FORMS, 1 IN 1 TOTAL, ORAL
     Route: 048
  6. IBUPROFEN [Suspect]
     Indication: PRODUCT USED FOR UNKNOWN INDICATION
     Dosage: 12 DOSAGE FORMS, 1 IN 1 TOTAL, ORAL
     Route: 048
  7. METOPROLOL TARTRATE [Suspect]
     Indication: PRODUCT USED FOR UNKNOWN INDICATION
     Dosage: 10 DOSAGE FORMS, 1 IN 1 TOTAL, ORAL
     Route: 048
  8. FRISIUM (CLOBAZAM) [Suspect]
     Dosage: 12 DOSAGE FORMS, 1 IN 1 TOTAL, ORAL
     Route: 048
  9. RHINOPRONT(RHINOPRONT /00100301/) [Suspect]
     Indication: PRODUCT USED FOR UNKNOWN INDICATION
     Dosage: 20 DOSAGE FORMS, 1 IN 1 TOTAL, ORAL
     Route: 048
  10. IBUPROFEN [Suspect]
     Indication: PRODUCT USED FOR UNKNOWN INDICATION
     Dosage: 12 DOSAGE FORMS, 1 IN 1 TOTAL, ORAL
     Route: 048
  11. SUDAFED (OXYMETAZOLINE HYDROCHLORIDE) [Suspect]
     Indication: PRODUCT USED FOR UNKNOWN INDICATION
     Dosage: 12 DOSAGE FORMS, 1 IN 1 TOTAL, ORAL
     Route: 048

REACTIONS (4)
  - MULTIPLE DRUG OVERDOSE INTENTIONAL [None]
  - CHEST PAIN [None]
  - FATIGUE [None]
  - SUICIDE ATTEMPT [None]
